FAERS Safety Report 24543486 (Version 2)
Quarter: 2025Q4

REPORT INFORMATION
  Report Type: Spontaneous
  Country: US (occurrence: US)
  Receive Date: 20241024
  Receipt Date: 20251205
  Transmission Date: 20260117
  Serious: Yes (Other)
  Sender: RANBAXY
  Company Number: US-SUN PHARMACEUTICAL INDUSTRIES LTD-2024R1-474328

PATIENT
  Age: 69 Year
  Sex: Male

DRUGS (3)
  1. CLOZAPINE [Interacting]
     Active Substance: CLOZAPINE
     Indication: Psychotic symptom
     Dosage: 50 MILLIGRAM, DAILY
     Route: 065
  2. DONEPEZIL [Interacting]
     Active Substance: DONEPEZIL
     Indication: Cognitive disorder
     Dosage: 5 MILLIGRAM, DAILY
     Route: 065
     Dates: start: 202304
  3. DONEPEZIL [Interacting]
     Active Substance: DONEPEZIL
     Dosage: 10 MILLIGRAM, DAILY
     Route: 065

REACTIONS (2)
  - Delirium [Recovered/Resolved]
  - Potentiating drug interaction [Unknown]
